FAERS Safety Report 17201797 (Version 1)
Quarter: 2019Q4

REPORT INFORMATION
  Report Type: Spontaneous
  Country: NL (occurrence: NL)
  Receive Date: 20191226
  Receipt Date: 20191226
  Transmission Date: 20200122
  Serious: Yes (Life-Threatening, Hospitalization)
  Sender: FDA-Public Use
  Company Number: NL-EMD SERONO-E2B_90073511

PATIENT
  Age: 37 Year
  Sex: Female
  Weight: 65 kg

DRUGS (1)
  1. GONAL-F [Suspect]
     Active Substance: FOLLITROPIN
     Indication: OVULATION INDUCTION
     Dosage: FORM STRENGTH: 600 IE/ML?PEN: 0.5 ML
     Route: 058
     Dates: start: 20190501, end: 20190707

REACTIONS (4)
  - Cardiac arrest [Recovered/Resolved]
  - Ovarian hyperstimulation syndrome [Unknown]
  - Thrombocytopenia [Unknown]
  - Ventricular fibrillation [Recovered/Resolved]

NARRATIVE: CASE EVENT DATE: 20190728
